FAERS Safety Report 8819271 (Version 1)
Quarter: 2012Q4

REPORT INFORMATION
  Report Type: Spontaneous
  Country: FR (occurrence: None)
  Receive Date: 20121003
  Receipt Date: 20121003
  Transmission Date: 20130627
  Serious: Yes (Other)
  Sender: FDA-Public Use
  Company Number: DSA_59918_2012

PATIENT
  Age: 60 Year
  Sex: Female

DRUGS (2)
  1. FLAGYL [Suspect]
     Indication: PRODUCT USED FOR UNKNOWN INDICATION
     Route: 048
     Dates: start: 20120919
  2. SERESTA [Concomitant]

REACTIONS (3)
  - Convulsion [None]
  - Dizziness [None]
  - Dyspepsia [None]
